FAERS Safety Report 18187129 (Version 1)
Quarter: 2020Q3

REPORT INFORMATION
  Report Type: Spontaneous
  Country: US (occurrence: US)
  Receive Date: 20200822
  Receipt Date: 20200822
  Transmission Date: 20201103
  Serious: Yes (Hospitalization)
  Sender: FDA-Public Use
  Company Number: None

PATIENT
  Age: 15 Year
  Sex: Male
  Weight: 81.1 kg

DRUGS (4)
  1. IFOSFAMIDE. [Suspect]
     Active Substance: IFOSFAMIDE
     Dates: end: 20200815
  2. G?CSF (FILGRASTIM, AMGEN) [Suspect]
     Active Substance: FILGRASTIM
     Dates: end: 20200819
  3. TAXOL [Suspect]
     Active Substance: PACLITAXEL
     Dates: end: 20200810
  4. CISPLATIN (119875) [Suspect]
     Active Substance: CISPLATIN
     Dates: end: 20200815

REACTIONS (7)
  - Abdominal pain [None]
  - Neoplasm progression [None]
  - Oral pain [None]
  - Febrile neutropenia [None]
  - Germ cell neoplasm [None]
  - Neoplasm recurrence [None]
  - Headache [None]

NARRATIVE: CASE EVENT DATE: 20200819
